FAERS Safety Report 26162881 (Version 1)
Quarter: 2025Q4

REPORT INFORMATION
  Report Type: Spontaneous
  Country: AU (occurrence: AU)
  Receive Date: 20251216
  Receipt Date: 20251216
  Transmission Date: 20260118
  Serious: Yes (Other)
  Sender: ROCHE
  Company Number: AU-ROCHE-10000450628

PATIENT
  Age: 29 Year
  Sex: Female

DRUGS (5)
  1. ALECTINIB [Suspect]
     Active Substance: ALECTINIB
     Indication: Non-small cell lung cancer
     Dosage: REDUCED TO 450MG BD AFTER TWO MONTHS
     Dates: start: 202305
  2. CARBOPLATIN [Suspect]
     Active Substance: CARBOPLATIN
     Indication: Non-small cell lung cancer
     Dosage: REDUCED TO 450MG BD AFTER TWO MONTHS
  3. PACLITAXEL [Suspect]
     Active Substance: PACLITAXEL
     Indication: Non-small cell lung cancer
     Dosage: REDUCED TO 450MG BD AFTER TWO MONTHS
  4. LORLATINIB [Suspect]
     Active Substance: LORLATINIB
     Indication: Non-small cell lung cancer
  5. PEMETREXED [Suspect]
     Active Substance: PEMETREXED
     Indication: Non-small cell lung cancer

REACTIONS (5)
  - Maternal exposure before pregnancy [Unknown]
  - Cerebral artery occlusion [Unknown]
  - Maternal exposure during pregnancy [Unknown]
  - Premature delivery [Unknown]
  - Disease progression [Unknown]
